FAERS Safety Report 5974891-7 (Version None)
Quarter: 2008Q4

REPORT INFORMATION
  Report Type: 
  Country: None (occurrence: None)
  Receive Date: 20081202
  Receipt Date: 20081121
  Transmission Date: 20090506
  Serious: Yes (Death)
  Sender: FDA-Public Use
  Company Number: CO-PFIZER INC-2008100031

PATIENT
  Sex: Male

DRUGS (1)
  1. SUTENT [Suspect]
     Dates: start: 20081031

REACTIONS (1)
  - EPISTAXIS [None]
